FAERS Safety Report 24948470 (Version 1)
Quarter: 2025Q1

REPORT INFORMATION
  Report Type: Spontaneous
  Country: ZA (occurrence: ZA)
  Receive Date: 20250210
  Receipt Date: 20250210
  Transmission Date: 20250408
  Serious: Yes (Hospitalization)
  Sender: AMGEN
  Company Number: ZA-SERVIER-S24018650

PATIENT
  Age: 53 Year
  Sex: Male

DRUGS (20)
  1. IVABRADINE HYDROCHLORIDE [Suspect]
     Active Substance: IVABRADINE HYDROCHLORIDE
     Indication: Angina pectoris
     Dosage: 5 MG, BID
     Route: 048
  2. OXYCODONE HYDROCHLORIDE [Concomitant]
     Active Substance: OXYCODONE HYDROCHLORIDE
     Indication: Surgery
     Dosage: 10 MG, TID
     Route: 048
  3. CYCLIZINE [Concomitant]
     Active Substance: CYCLIZINE
     Indication: Product used for unknown indication
     Route: 065
  4. QUETIAPINE [Concomitant]
     Active Substance: QUETIAPINE
     Indication: Mental disorder
     Dosage: 600 MG, QD AT NIGHT
     Route: 048
  5. ERGOCALCIFEROL [Concomitant]
     Active Substance: ERGOCALCIFEROL
     Indication: Product used for unknown indication
     Dosage: 50000 IU TAKE ONE TABLET WEEKLY ON THE SAME DAY
     Route: 048
  6. SIMVASTATIN [Concomitant]
     Active Substance: SIMVASTATIN
     Indication: Blood cholesterol abnormal
     Dosage: 40 MG, QD AT NIGHT
     Route: 048
  7. AMITRIPTYLINE HYDROCHLORIDE [Concomitant]
     Active Substance: AMITRIPTYLINE HYDROCHLORIDE
     Indication: Depression
     Dosage: 100 MG, QD AT NIGHT
     Route: 048
  8. DIAZEPAM [Concomitant]
     Active Substance: DIAZEPAM
     Indication: Anxiety
     Dosage: 10 MG, QID
     Route: 048
  9. Medazine [Concomitant]
     Indication: Product used for unknown indication
     Dosage: 50 MG, TID
     Route: 048
  10. ACETAMINOPHEN\CAFFEINE\CODEINE PHOSPHATE\MEPROBAMATE [Concomitant]
     Active Substance: ACETAMINOPHEN\CAFFEINE\CODEINE PHOSPHATE\MEPROBAMATE
     Indication: Pain
     Dosage: TAKE TWO TABLETS EVERY 6 HOURS
     Route: 048
  11. CARVEDILOL [Concomitant]
     Active Substance: CARVEDILOL
     Indication: Hypertension
     Dosage: 12.5 MG, BID
     Route: 048
  12. CARVEDILOL [Concomitant]
     Active Substance: CARVEDILOL
     Dosage: 6.25 MG TAKE HALF A TABLET TWICE A DAY
     Route: 048
  13. LOPERAMIDE [Concomitant]
     Active Substance: LOPERAMIDE
     Indication: Product used for unknown indication
     Dosage: 2 MG, TID
     Route: 048
  14. SCOPEX [Concomitant]
     Indication: Product used for unknown indication
     Route: 065
  15. BUTYLSCOPOLAMINE BROMIDE [Concomitant]
     Active Substance: BUTYLSCOPOLAMINE BROMIDE
     Indication: Product used for unknown indication
     Dosage: 10 MG, BID
     Route: 048
  16. LOSARTAN POTASSIUM [Concomitant]
     Active Substance: LOSARTAN POTASSIUM
     Indication: Hypertension
     Dosage: 50 MG, QD
     Route: 048
  17. Lennon vitamin b12 [Concomitant]
     Indication: Product used for unknown indication
     Dosage: 1000 MCG INJECT 1ML MONTHLY
     Route: 030
  18. Pantocid [Concomitant]
     Indication: Ulcer
     Dosage: 40 MG, QD IN THE MORNING
     Route: 065
  19. REHIDRAT [Concomitant]
     Indication: Product used for unknown indication
     Route: 048
  20. Allergex [Concomitant]
     Indication: Hypersensitivity
     Dosage: 4 MG, QD AT NIGHT
     Route: 048

REACTIONS (2)
  - Hyponatraemia [Unknown]
  - Hyponatraemic coma [Unknown]

NARRATIVE: CASE EVENT DATE: 20210101
